FAERS Safety Report 9999618 (Version 1)
Quarter: 2014Q1

REPORT INFORMATION
  Report Type: Spontaneous
  Country: IT (occurrence: IT)
  Receive Date: 20140312
  Receipt Date: 20140312
  Transmission Date: 20141002
  Serious: Yes (Other)
  Sender: FDA-Public Use
  Company Number: IT-TEVA-468073ISR

PATIENT
  Age: 46 Year
  Sex: Male

DRUGS (4)
  1. CLARITHROMYCIN [Suspect]
     Indication: TOOTH INFECTION
     Dosage: 500 MILLIGRAM DAILY;
     Route: 048
     Dates: start: 20140112, end: 20140112
  2. AUGMENTIN - 875 MG/125 MG POLVERE PER SOSPENSIONE ORALE [Suspect]
     Indication: TOOTH INFECTION
     Dosage: 2 DOSAGE FORMS DAILY;
     Route: 048
     Dates: start: 20140110, end: 20140113
  3. OKI - 80 MG GRANULATO PER SOLUZIONE ORALE [Concomitant]
     Indication: TOOTHACHE
     Dosage: GRANULES FOR ORAL SOLUTION
     Route: 048
     Dates: start: 20140110, end: 20140113
  4. PARACETAMOL [Concomitant]
     Indication: TOOTHACHE
     Route: 048
     Dates: start: 20140110, end: 20140113

REACTIONS (4)
  - Periorbital oedema [Recovering/Resolving]
  - Headache [Recovering/Resolving]
  - Nausea [Recovering/Resolving]
  - Vomiting [Recovering/Resolving]
